FAERS Safety Report 6938281-2 (Version None)
Quarter: 2010Q3

REPORT INFORMATION
  Report Type: 
  Country: None (occurrence: None)
  Receive Date: 20100824
  Receipt Date: 20100813
  Transmission Date: 20110219
  Serious: Yes (Other)
  Sender: FDA-Public Use
  Company Number: GB-NOVOPROD-313098

PATIENT
  Sex: Female

DRUGS (1)
  1. NOVOMIX 30 [Suspect]
     Indication: TYPE 2 DIABETES MELLITUS
     Dosage: 23 IU, QD (10+13)
     Route: 058
     Dates: start: 20100601

REACTIONS (4)
  - FLUID RETENTION [None]
  - PULMONARY OEDEMA [None]
  - SWELLING [None]
  - VISUAL IMPAIRMENT [None]
